FAERS Safety Report 7271713-1 (Version None)
Quarter: 2011Q1

REPORT INFORMATION
  Report Type: 
  Country: None (occurrence: None)
  Receive Date: 20110203
  Receipt Date: 20110126
  Transmission Date: 20110831
  Serious: Yes (Hospitalization)
  Sender: FDA-Public Use
  Company Number: US-AMGEN-USASP2011005205

PATIENT
  Sex: Male

DRUGS (5)
  1. NEULASTA [Suspect]
     Indication: NEUTROPENIA
     Dates: start: 20101001
  2. CARBOPLATIN [Concomitant]
     Indication: LUNG NEOPLASM MALIGNANT
     Dates: start: 20100101
  3. ALIMTA [Concomitant]
     Indication: LUNG NEOPLASM MALIGNANT
  4. CISPLATIN [Concomitant]
     Indication: LUNG NEOPLASM MALIGNANT
  5. TAXOL [Concomitant]
     Indication: LUNG NEOPLASM MALIGNANT
     Dates: start: 20100101

REACTIONS (3)
  - PULMONARY EMBOLISM [None]
  - COLLAPSE OF LUNG [None]
  - LUNG DISORDER [None]
